FAERS Safety Report 20256063 (Version 2)
Quarter: 2022Q1

REPORT INFORMATION
  Report Type: Report from Study
  Country: CO (occurrence: CO)
  Receive Date: 20211230
  Receipt Date: 20220201
  Transmission Date: 20220423
  Serious: Yes (Other)
  Sender: FDA-Public Use
  Company Number: CO-JNJFOC-20211255138

PATIENT
  Age: 64 Year
  Sex: Female
  Weight: 63 kg

DRUGS (5)
  1. REMICADE [Suspect]
     Active Substance: INFLIXIMAB
     Indication: Rheumatoid arthritis
     Route: 042
     Dates: start: 20130321, end: 20210922
  2. PREDNISOLONE [Concomitant]
     Active Substance: PREDNISOLONE
  3. CALCIUM [Concomitant]
     Active Substance: CALCIUM
  4. LEFLUNOMIDE [Concomitant]
     Active Substance: LEFLUNOMIDE
  5. ACETAMINOPHEN [Concomitant]
     Active Substance: ACETAMINOPHEN

REACTIONS (1)
  - Tuberculin test positive [Recovering/Resolving]

NARRATIVE: CASE EVENT DATE: 20211001
